FAERS Safety Report 5465819-7 (Version None)
Quarter: 2007Q3

REPORT INFORMATION
  Report Type: 
  Country: None (occurrence: None)
  Receive Date: 20070919
  Receipt Date: 20070919
  Transmission Date: 20080115
  Serious: Yes (Life-Threatening, Other)
  Sender: FDA-Public Use
  Company Number: None

PATIENT
  Age: 34 Year
  Sex: Female
  Weight: 54.4316 kg

DRUGS (1)
  1. LEVAQUIN [Suspect]
     Indication: URINARY TRACT INFECTION
     Dosage: 5 DAYS PO
     Route: 048
     Dates: start: 20060507, end: 20060512

REACTIONS (15)
  - ANXIETY [None]
  - DISCOMFORT [None]
  - FLUSHING [None]
  - HEADACHE [None]
  - LIMB DISCOMFORT [None]
  - LYMPHADENOPATHY [None]
  - MUSCLE SPASMS [None]
  - MUSCULAR WEAKNESS [None]
  - MUSCULOSKELETAL DISCOMFORT [None]
  - NAUSEA [None]
  - NIGHT SWEATS [None]
  - PALPITATIONS [None]
  - PANIC ATTACK [None]
  - PYREXIA [None]
  - VOMITING [None]
